FAERS Safety Report 9464594 (Version 1)
Quarter: 2013Q3

REPORT INFORMATION
  Report Type: Spontaneous
  Country: US (occurrence: US)
  Receive Date: 20130819
  Receipt Date: 20130819
  Transmission Date: 20140515
  Serious: No
  Sender: FDA-Public Use
  Company Number: US-PFIZER INC-2013238401

PATIENT
  Age: 48 Year
  Sex: Male
  Weight: 111 kg

DRUGS (5)
  1. CHANTIX [Suspect]
     Indication: NICOTINE DEPENDENCE
     Dosage: UNK
     Dates: start: 20130809
  2. NICOTINE [Suspect]
     Indication: SMOKING CESSATION THERAPY
     Dosage: UNK
  3. LISINOPRIL [Concomitant]
     Indication: BLOOD PRESSURE ABNORMAL
     Dosage: 20 MG, 1X/DAY
  4. CRESTOR [Concomitant]
     Indication: BLOOD CHOLESTEROL ABNORMAL
     Dosage: 20 MG, 1X/DAY
  5. LEVOTHYROXINE [Concomitant]
     Indication: THYROID DISORDER
     Dosage: 0.137 MG, 1X/DAY

REACTIONS (4)
  - Off label use [Unknown]
  - Nicotine dependence [Unknown]
  - Nausea [Recovered/Resolved]
  - Dizziness [Unknown]
